FAERS Safety Report 8785166 (Version 1)
Quarter: 2012Q4

REPORT INFORMATION
  Report Type: 
  Country: US (occurrence: US)
  Receive Date: 20120914
  Receipt Date: 20120914
  Transmission Date: 20130627
  Serious: No
  Sender: FDA-Public Use
  Company Number: US-009507513-1209USA005841

PATIENT

DRUGS (4)
  1. VYTORIN [Suspect]
     Dosage: UNK
     Route: 048
     Dates: start: 201009, end: 20120907
  2. ENALAPRIL MALEATE [Concomitant]
  3. AMLODIPINE [Concomitant]
  4. DICLOFENAC [Concomitant]

REACTIONS (1)
  - Pain [Not Recovered/Not Resolved]
